FAERS Safety Report 13031035 (Version 1)
Quarter: 2016Q4

REPORT INFORMATION
  Report Type: Spontaneous
  Country: US (occurrence: US)
  Receive Date: 20161215
  Receipt Date: 20161215
  Transmission Date: 20170207
  Serious: No
  Sender: FDA-Public Use
  Company Number: US-ELI_LILLY_AND_COMPANY-US201607012598

PATIENT
  Sex: Female
  Weight: 145 kg

DRUGS (2)
  1. CYMBALTA [Suspect]
     Active Substance: DULOXETINE HYDROCHLORIDE
     Indication: NEURALGIA
     Dosage: UNK, UNKNOWN
     Route: 048
  2. CYMBALTA [Suspect]
     Active Substance: DULOXETINE HYDROCHLORIDE
     Indication: BACK PAIN

REACTIONS (7)
  - Drug withdrawal syndrome [Unknown]
  - Vertigo [Unknown]
  - Tearfulness [Unknown]
  - Paraesthesia [Unknown]
  - Sensory disturbance [Unknown]
  - Dysphoria [Unknown]
  - Dizziness [Unknown]
